FAERS Safety Report 24257847 (Version 1)
Quarter: 2024Q3

REPORT INFORMATION
  Report Type: Spontaneous
  Country: ES (occurrence: ES)
  Receive Date: 20240828
  Receipt Date: 20240828
  Transmission Date: 20241016
  Serious: Yes (Hospitalization)
  Sender: MYLAN
  Company Number: None

PATIENT
  Age: 77 Year
  Sex: Male

DRUGS (3)
  1. POMALIDOMIDE [Interacting]
     Active Substance: POMALIDOMIDE
     Indication: Plasma cell myeloma
     Dosage: 3 MILLIGRAM, 22 DAYS
     Route: 048
     Dates: start: 20240402, end: 20240709
  2. ISATUXIMAB [Interacting]
     Active Substance: ISATUXIMAB
     Indication: Plasma cell myeloma
     Dosage: 1 MILLIGRAM, 22 DAYS
     Route: 042
     Dates: start: 20240402, end: 20240709
  3. DEXAMETHASONE [Concomitant]
     Active Substance: DEXAMETHASONE
     Indication: Plasma cell myeloma
     Dosage: 20 MILLIGRAM
     Route: 048
     Dates: start: 20240402

REACTIONS (2)
  - Upper respiratory tract infection [Recovered/Resolved]
  - Drug interaction [Unknown]

NARRATIVE: CASE EVENT DATE: 20240724
